FAERS Safety Report 9921202 (Version 1)
Quarter: 2014Q1

REPORT INFORMATION
  Report Type: Spontaneous
  Country: US (occurrence: None)
  Receive Date: 20140221
  Receipt Date: 20140221
  Transmission Date: 20141002
  Serious: No
  Sender: FDA-Public Use
  Company Number: None

PATIENT
  Age: 63 Year
  Sex: Female
  Weight: 75.75 kg

DRUGS (1)
  1. ZOLPIDEM [Suspect]
     Indication: DYSTHYMIC DISORDER
     Route: 048
     Dates: start: 2014

REACTIONS (1)
  - Memory impairment [None]
